FAERS Safety Report 5431364-8 (Version None)
Quarter: 2007Q3

REPORT INFORMATION
  Report Type: 
  Country: None (occurrence: None)
  Receive Date: 20070830
  Receipt Date: 20070509
  Transmission Date: 20080115
  Serious: No
  Sender: FDA-Public Use
  Company Number: A0650608A

PATIENT
  Age: 65 Year
  Sex: Female

DRUGS (4)
  1. WELLBUTRIN XL [Suspect]
     Indication: DEPRESSION
     Dosage: 150MG PER DAY
     Route: 048
     Dates: start: 20070505, end: 20070505
  2. PROZAC [Concomitant]
  3. AMBIEN [Concomitant]
  4. SYNTHROID [Concomitant]

REACTIONS (4)
  - DISTURBANCE IN ATTENTION [None]
  - DIZZINESS [None]
  - NAUSEA [None]
  - OFF LABEL USE [None]
